FAERS Safety Report 20195182 (Version 1)
Quarter: 2021Q4

REPORT INFORMATION
  Report Type: Spontaneous
  Country: US (occurrence: None)
  Receive Date: 20211216
  Receipt Date: 20211216
  Transmission Date: 20220303
  Serious: No
  Sender: FDA-Public Use
  Company Number: None

PATIENT
  Age: 26 Year
  Sex: Male

DRUGS (1)
  1. STELARA [Suspect]
     Active Substance: USTEKINUMAB
     Indication: Crohn^s disease
     Dosage: FREQUENCY : MONTHLY;?
     Route: 058
     Dates: start: 202009

REACTIONS (8)
  - Abdominal discomfort [None]
  - Haematochezia [None]
  - Pallor [None]
  - Dizziness [None]
  - Abdominal pain upper [None]
  - Drug ineffective [None]
  - Crohn^s disease [None]
  - Therapy cessation [None]

NARRATIVE: CASE EVENT DATE: 20211215
